FAERS Safety Report 20048163 (Version 1)
Quarter: 2021Q4

REPORT INFORMATION
  Report Type: Spontaneous
  Country: US (occurrence: US)
  Receive Date: 20211109
  Receipt Date: 20211109
  Transmission Date: 20220303
  Serious: No
  Sender: FDA-Public Use
  Company Number: US-ALLERGAN-2123273US

PATIENT
  Age: 56 Year
  Sex: Female

DRUGS (1)
  1. POLYMYXIN B\TRIMETHOPRIM SULFATE [Suspect]
     Active Substance: POLYMYXIN B\TRIMETHOPRIM SULFATE
     Indication: Eye infection
     Dosage: UNK
     Route: 047

REACTIONS (3)
  - Lip pain [Recovered/Resolved]
  - Drug hypersensitivity [Not Recovered/Not Resolved]
  - Ocular hyperaemia [Recovered/Resolved]
